FAERS Safety Report 7828265-4 (Version None)
Quarter: 2011Q4

REPORT INFORMATION
  Report Type: 
  Country: None (occurrence: None)
  Receive Date: 20111020
  Receipt Date: 20111014
  Transmission Date: 20120403
  Serious: Yes (Hospitalization, Other)
  Sender: FDA-Public Use
  Company Number: US-ABBOTT-11P-163-0848547-00

PATIENT
  Sex: Female
  Weight: 68.1 kg

DRUGS (7)
  1. HUMIRA [Suspect]
     Indication: RHEUMATOID ARTHRITIS
     Route: 058
     Dates: start: 20080101, end: 20090101
  2. HUMIRA [Suspect]
     Route: 058
     Dates: start: 20090101
  3. METHOTREXATE [Concomitant]
     Indication: PRODUCT USED FOR UNKNOWN INDICATION
     Route: 048
  4. PLAQUENIL [Concomitant]
     Indication: PRODUCT USED FOR UNKNOWN INDICATION
     Route: 048
  5. FOLIC ACID [Concomitant]
     Indication: PRODUCT USED FOR UNKNOWN INDICATION
     Route: 048
  6. UNKNOWN SLEEPING MEDICATION [Concomitant]
     Indication: PRODUCT USED FOR UNKNOWN INDICATION
  7. OXYCODONE HCL AND ACETAMINOPHEN [Concomitant]
     Indication: PAIN
     Route: 048

REACTIONS (10)
  - ARTHRALGIA [None]
  - HYPERTENSION [None]
  - TRANSIENT ISCHAEMIC ATTACK [None]
  - SQUAMOUS CELL CARCINOMA [None]
  - VISION BLURRED [None]
  - BASAL CELL CARCINOMA [None]
  - GAIT DISTURBANCE [None]
  - JOINT SWELLING [None]
  - DRUG EFFECT DECREASED [None]
  - UPPER RESPIRATORY TRACT INFECTION [None]
